FAERS Safety Report 12473608 (Version 2)
Quarter: 2016Q2

REPORT INFORMATION
  Report Type: Spontaneous
  Country: FI (occurrence: FI)
  Receive Date: 20160616
  Receipt Date: 20160628
  Transmission Date: 20160815
  Serious: Yes (Congenital Anomaly)
  Sender: FDA-Public Use
  Company Number: FI-BAYER-2016-112199

PATIENT
  Age: 0 Day
  Sex: Female
  Weight: 3.33 kg

DRUGS (2)
  1. BETAFERON [Suspect]
     Active Substance: INTERFERON BETA-1B
     Dosage: UNK
     Route: 064
  2. BETAFERON [Suspect]
     Active Substance: INTERFERON BETA-1B
     Dosage: UNK
     Route: 064

REACTIONS (3)
  - Foetal exposure during pregnancy [None]
  - Congenital heart valve disorder [None]
  - Pulmonary valve stenosis congenital [None]

NARRATIVE: CASE EVENT DATE: 20160519
